FAERS Safety Report 10028019 (Version 2)
Quarter: 2014Q3

REPORT INFORMATION
  Report Type: Spontaneous
  Country: AR (occurrence: AR)
  Receive Date: 20140321
  Receipt Date: 20140915
  Transmission Date: 20150326
  Serious: Yes (Hospitalization, Other)
  Sender: FDA-Public Use
  Company Number: AR-ALEXION PHARMACEUTICALS INC.-A201400861

PATIENT

DRUGS (10)
  1. ERYTHROPOIETIN HUMAN [Concomitant]
     Indication: ANAEMIA
     Dosage: 10000 IU, TIW
     Route: 058
     Dates: start: 20130618, end: 201308
  2. SOLIRIS [Suspect]
     Active Substance: ECULIZUMAB
     Dosage: 900 MG, Q2W
     Route: 042
     Dates: start: 20140117
  3. METFORMINE [Concomitant]
     Active Substance: METFORMIN HYDROCHLORIDE
     Indication: TYPE 2 DIABETES MELLITUS
     Dosage: 500 MG, QD
     Route: 048
     Dates: start: 2008
  4. NANDROLONE [Concomitant]
     Active Substance: NANDROLONE
     Indication: HAEMOLYTIC ANAEMIA
     Dosage: 50 MG, QW
     Route: 030
     Dates: start: 20130527, end: 201306
  5. SOLIRIS [Suspect]
     Active Substance: ECULIZUMAB
     Dosage: 1200 MG, Q2W
     Route: 042
  6. DANAZOL. [Concomitant]
     Active Substance: DANAZOL
     Indication: PAROXYSMAL NOCTURNAL HAEMOGLOBINURIA
     Route: 065
  7. SPIRONOLACTONE. [Concomitant]
     Active Substance: SPIRONOLACTONE
     Indication: PRODUCT USED FOR UNKNOWN INDICATION
     Dosage: 100 MG, QD
     Route: 048
  8. SOLIRIS [Suspect]
     Active Substance: ECULIZUMAB
     Indication: PAROXYSMAL NOCTURNAL HAEMOGLOBINURIA
     Dosage: 600 MG, QW
     Route: 042
     Dates: start: 20131220, end: 20140110
  9. MEPREDNISONE [Concomitant]
     Active Substance: MEPREDNISONE
     Indication: PAROXYSMAL NOCTURNAL HAEMOGLOBINURIA
     Dosage: 10 MG, QD
     Route: 048
     Dates: start: 20130920
  10. FUROSEMIDE. [Concomitant]
     Active Substance: FUROSEMIDE
     Indication: PRODUCT USED FOR UNKNOWN INDICATION
     Dosage: 40 MG, QD
     Route: 048

REACTIONS (8)
  - Splenomegaly [Unknown]
  - Liver disorder [Unknown]
  - Ascites [Recovered/Resolved]
  - Ascites [Unknown]
  - Weight increased [Unknown]
  - Oedema peripheral [Unknown]
  - Portal hypertension [Recovered/Resolved]
  - Incorrect dose administered [Unknown]

NARRATIVE: CASE EVENT DATE: 20140228
